FAERS Safety Report 8309971-4 (Version None)
Quarter: 2012Q2

REPORT INFORMATION
  Report Type: 
  Country: None (occurrence: None)
  Receive Date: 20120425
  Receipt Date: 20120423
  Transmission Date: 20120825
  Serious: Yes (Other)
  Sender: FDA-Public Use
  Company Number: US-PFIZER INC-2012100476

PATIENT
  Sex: Female
  Weight: 95.238 kg

DRUGS (8)
  1. AMIODARONE HCL [Suspect]
     Indication: ATRIAL FIBRILLATION
     Dosage: 200 MG, 1X/DAY
     Route: 048
     Dates: start: 19970901, end: 20120214
  2. COREG [Concomitant]
     Dosage: UNK
  3. VASOTEC [Concomitant]
     Dosage: 50 MG, 1X/DAY
  4. LIPITOR [Concomitant]
     Dosage: UNK, 1X/DAY
  5. LASIX [Concomitant]
     Dosage: UNK
  6. WARFARIN [Concomitant]
     Dosage: 5MG AND 2.5 MG, EVERY ALTERNATE DAY
  7. SPIRONOLACTONE [Concomitant]
     Dosage: UNK
  8. MEXILETINE [Concomitant]
     Dosage: UNK

REACTIONS (2)
  - ARTHROPATHY [None]
  - ATRIAL FIBRILLATION [None]
